FAERS Safety Report 10089346 (Version 3)
Quarter: 2014Q2

REPORT INFORMATION
  Report Type: Spontaneous
  Country: JP (occurrence: JP)
  Receive Date: 20140421
  Receipt Date: 20140429
  Transmission Date: 20141212
  Serious: Yes (Other)
  Sender: FDA-Public Use
  Company Number: JP-BAYER-2014-015844

PATIENT
  Age: 46 Year
  Sex: Female
  Weight: 35 kg

DRUGS (12)
  1. STIVARGA [Suspect]
     Indication: COLORECTAL CANCER
     Dosage: 160 MG, QD (ON FOR 3 WEEKS AND OFF FOR 1 WEEK)
     Route: 048
     Dates: start: 20131024, end: 20131031
  2. STIVARGA [Suspect]
     Indication: COLORECTAL CANCER
     Dosage: 160 MG, QD (ON FOR 3 WEEKS AND OFF FOR 1 WEEK)
     Route: 048
     Dates: start: 20131107, end: 20131120
  3. STIVARGA [Suspect]
     Indication: COLORECTAL CANCER
     Dosage: 160 MG, QD (ON FOR 3 WEEKS AND OFF FOR 1 WEEK)
     Route: 048
     Dates: start: 20131128, end: 20131212
  4. STIVARGA [Suspect]
     Indication: COLORECTAL CANCER
     Dosage: 160 MG, QD (ON FOR 3 WEEKS AND OFF FOR 1 WEEK)
     Route: 048
     Dates: start: 20131219, end: 20131226
  5. STIVARGA [Suspect]
     Indication: COLORECTAL CANCER
     Dosage: 160 MG, QD (ON FOR 3 WEEKS AND OFF FOR 1 WEEK)
     Route: 048
     Dates: start: 20140116, end: 20140123
  6. STIVARGA [Suspect]
     Indication: COLORECTAL CANCER
     Dosage: 80 MG, QD
     Route: 048
     Dates: start: 2014
  7. XELODA [Concomitant]
     Dosage: UNK
     Route: 048
     Dates: start: 2014, end: 2014
  8. TS 1 [Concomitant]
     Dosage: UNK
     Route: 048
     Dates: start: 2014, end: 2014
  9. TS 1 [Concomitant]
  10. LOXONIN [Concomitant]
     Dosage: UNK
  11. MUCOSTA [Concomitant]
  12. BIO-THREE [Concomitant]
     Route: 048

REACTIONS (2)
  - Blood bilirubin increased [Recovering/Resolving]
  - Restless legs syndrome [Recovering/Resolving]
